FAERS Safety Report 8270452-8 (Version None)
Quarter: 2012Q2

REPORT INFORMATION
  Report Type: 
  Country: None (occurrence: None)
  Receive Date: 20120405
  Receipt Date: 20120322
  Transmission Date: 20120825
  Serious: Yes (Hospitalization)
  Sender: FDA-Public Use
  Company Number: DSJ-2012-05652

PATIENT
  Sex: Female

DRUGS (9)
  1. LEVOTHYROXINE SODIUM [Concomitant]
  2. RANITIDINE [Concomitant]
  3. TRAMADOL HCL [Concomitant]
  4. OMEPRAZOLE [Concomitant]
  5. VITAMIN D (ERGOCALCIFEROL) (ERGOCALCIFEROL) [Concomitant]
  6. BENICAR HCT [Suspect]
     Indication: HYPERTENSION
     Dosage: 40/12.5 MG (1 IN 1 D), PER ORAL, 20/6.25 MG (1 IN 1 D), PER ORAL
     Route: 048
     Dates: start: 20080101, end: 20100101
  7. BENICAR HCT [Suspect]
     Indication: HYPERTENSION
     Dosage: 40/12.5 MG (1 IN 1 D), PER ORAL, 20/6.25 MG (1 IN 1 D), PER ORAL
     Route: 048
     Dates: start: 20100101
  8. CALCIUM (CALCIUM) (CALCIUM) [Concomitant]
  9. VITAMIN E (TOCOPHERYL ACETATE) (TOCOPHERYL ACETATE) [Concomitant]

REACTIONS (3)
  - INCORRECT DOSE ADMINISTERED [None]
  - ECONOMIC PROBLEM [None]
  - SPINAL OPERATION [None]
